FAERS Safety Report 7725804-9 (Version None)
Quarter: 2011Q3

REPORT INFORMATION
  Report Type: 
  Country: None (occurrence: None)
  Receive Date: 20110902
  Receipt Date: 20110829
  Transmission Date: 20111222
  Serious: Yes (Death)
  Sender: FDA-Public Use
  Company Number: DK-AMGEN-DNKCT2011029049

PATIENT
  Age: 62 Year
  Sex: Male

DRUGS (3)
  1. METHOTREXATE [Concomitant]
     Indication: RHEUMATOID ARTHRITIS
     Dosage: UNK
     Dates: start: 20070209, end: 20110207
  2. ETANERCEPT [Suspect]
     Indication: RHEUMATOID ARTHRITIS
     Dosage: 50 MG, QWK
     Dates: start: 20070209, end: 20110207
  3. HJERTEMAGNYL                       /01043701/ [Concomitant]
     Dosage: UNK
     Dates: start: 20040101

REACTIONS (2)
  - DUODENAL ULCER HAEMORRHAGE [None]
  - DELIRIUM [None]
